FAERS Safety Report 16108425 (Version 2)
Quarter: 2019Q2

REPORT INFORMATION
  Report Type: Spontaneous
  Country: ES (occurrence: ES)
  Receive Date: 20190323
  Receipt Date: 20190405
  Transmission Date: 20190711
  Serious: Yes (Hospitalization, Other)
  Sender: FDA-Public Use
  Company Number: ES-009507513-1903ESP007639

PATIENT
  Age: 72 Year
  Sex: Female

DRUGS (7)
  1. ADIRO [Suspect]
     Active Substance: ASPIRIN
     Dosage: STRENGTH:100(UNITS UNSPECIFIED)
  2. PROPRANOLOL [Suspect]
     Active Substance: PROPRANOLOL HYDROCHLORIDE
     Dosage: STRENGTH: 40 (UNSPECIFIED UNIT)
  3. VELMETIA [Suspect]
     Active Substance: METFORMIN\SITAGLIPTIN
     Dosage: 50/1000 STRENGTH
  4. NOCTAMID [Suspect]
     Active Substance: LORMETAZEPAM
  5. RAMIPRIL. [Suspect]
     Active Substance: RAMIPRIL
     Dosage: STRENGTH: 5 (UNSPECIFIED UNIT)
  6. ATORVASTATIN [Suspect]
     Active Substance: ATORVASTATIN
     Dosage: STRENGTH: 20 (UNSPECIFIED UNIT)
  7. DIPYRONE [Suspect]
     Active Substance: DIPYRONE
     Dosage: UNK

REACTIONS (1)
  - Cardiac failure [Unknown]
